FAERS Safety Report 8552903-4 (Version None)
Quarter: 2012Q3

REPORT INFORMATION
  Report Type: 
  Country: None (occurrence: None)
  Receive Date: 20120731
  Receipt Date: 20120717
  Transmission Date: 20120928
  Serious: Yes (Hospitalization)
  Sender: FDA-Public Use
  Company Number: US-MYLANLABS-2012S1014966

PATIENT
  Age: 53 Year
  Sex: Female

DRUGS (2)
  1. PHENYTOIN [Suspect]
     Route: 065
  2. RISPERIDONE [Suspect]
     Route: 065

REACTIONS (2)
  - HYPOTHERMIA [None]
  - ANTICONVULSANT DRUG LEVEL INCREASED [None]
